FAERS Safety Report 7763764-5 (Version None)
Quarter: 2011Q3

REPORT INFORMATION
  Report Type: 
  Country: None (occurrence: None)
  Receive Date: 20110921
  Receipt Date: 20110920
  Transmission Date: 20111222
  Serious: Yes (Other)
  Sender: FDA-Public Use
  Company Number: IT-BAYER-2011-088423

PATIENT
  Age: 32 Year
  Sex: Female

DRUGS (8)
  1. PROCARBAZINE HYDROCHLORIDE [Suspect]
     Indication: HODGKIN'S DISEASE
     Dosage: 6 COURSES
  2. ADRIAMYCIN PFS [Suspect]
     Indication: HODGKIN'S DISEASE
     Dosage: 6 COURSES
  3. VINBLASTINE SULFATE [Suspect]
     Indication: HODGKIN'S DISEASE
     Dosage: 6 COURSES
  4. BLEOMYCIN SULFATE [Suspect]
     Indication: HODGKIN'S DISEASE
     Dosage: 6 COURSES
  5. DACARBAZINE [Suspect]
     Indication: HODGKIN'S DISEASE
     Dosage: 6 COURSES
  6. PREDNISONE [Suspect]
     Indication: HODGKIN'S DISEASE
     Dosage: 6 COURSES
  7. MECHLORETHAMINE [Suspect]
     Indication: HODGKIN'S DISEASE
     Dosage: 6 COURSES
  8. ONCOVIN [Suspect]
     Indication: HODGKIN'S DISEASE
     Dosage: 6 COURSES

REACTIONS (1)
  - BARRETT'S OESOPHAGUS [None]
